FAERS Safety Report 26150814 (Version 1)
Quarter: 2025Q4

REPORT INFORMATION
  Report Type: Spontaneous
  Country: US (occurrence: None)
  Receive Date: 20251211
  Receipt Date: 20251211
  Transmission Date: 20260118
  Serious: Yes (Other)
  Sender: FDA-CTU
  Company Number: None

PATIENT
  Age: 40 Year
  Sex: Female
  Weight: 104.85 kg

DRUGS (1)
  1. METOLAZONE [Suspect]
     Active Substance: METOLAZONE
     Dosage: OTHER FREQUENCY : ONCE WEEKLY;
     Route: 048

REACTIONS (2)
  - Product dispensing error [None]
  - Intercepted product administration error [None]

NARRATIVE: CASE EVENT DATE: 20250512
